FAERS Safety Report 23517574 (Version 1)
Quarter: 2024Q1

REPORT INFORMATION
  Report Type: Spontaneous
  Country: US (occurrence: US)
  Receive Date: 20240213
  Receipt Date: 20240213
  Transmission Date: 20240410
  Serious: No
  Sender: FDA-Public Use
  Company Number: US-Eisai-EC-2024-157479

PATIENT
  Age: 82 Year
  Sex: Male

DRUGS (25)
  1. LENVIMA [Suspect]
     Active Substance: LENVATINIB
     Indication: Renal cell carcinoma
     Dosage: DOSE AND FREQUENCY UNKNOWN
     Route: 048
     Dates: start: 20231101
  2. KEYTRUDA [Suspect]
     Active Substance: PEMBROLIZUMAB
     Indication: Renal cell carcinoma
     Dosage: DOSE AND FREQUENCY UNKNOWN
     Dates: start: 20231101
  3. VITAMIN B12 [Concomitant]
     Active Substance: CYANOCOBALAMIN
  4. RIBOFLAVIN [Concomitant]
     Active Substance: RIBOFLAVIN
  5. INOSITOL [Concomitant]
     Active Substance: INOSITOL
  6. VITAMINS [Concomitant]
     Active Substance: VITAMINS
  7. American ginseng extract [Concomitant]
  8. CINNAMON [Concomitant]
     Active Substance: CINNAMON
  9. evnolsupra [Concomitant]
  10. TEA LEAF [Concomitant]
     Active Substance: TEA LEAF
  11. VANADIUM [Concomitant]
     Active Substance: VANADIUM
  12. antioxidant- biotin [Concomitant]
  13. COENZYME Q10 [Concomitant]
     Active Substance: DIETARY SUPPLEMENT\UBIDECARENONE
  14. nivaincetyl-cysteine [Concomitant]
  15. turmeric extract [Concomitant]
  16. pteropure [Concomitant]
  17. VITAMIN A [Concomitant]
     Active Substance: VITAMIN A
  18. VITAMIN C [Concomitant]
     Active Substance: ASCORBIC ACID
  19. CALCIUM [Concomitant]
     Active Substance: CALCIUM
  20. VITAMIN D3 [Concomitant]
     Active Substance: CHOLECALCIFEROL
  21. VITAMIN E [Concomitant]
     Active Substance: .ALPHA.-TOCOPHEROL
  22. THIAMINE [Concomitant]
     Active Substance: THIAMINE
  23. NIACIN [Concomitant]
     Active Substance: NIACIN
  24. VITAMIN B6 [Concomitant]
     Active Substance: PYRIDOXINE HYDROCHLORIDE
  25. FOLATE SODIUM [Concomitant]
     Active Substance: FOLATE SODIUM

REACTIONS (2)
  - Dyspnoea [Not Recovered/Not Resolved]
  - Dizziness [Not Recovered/Not Resolved]
